FAERS Safety Report 5080114-6 (Version None)
Quarter: 2006Q3

REPORT INFORMATION
  Report Type: 
  Country: None (occurrence: None)
  Receive Date: 20060810
  Receipt Date: 20060727
  Transmission Date: 20061208
  Serious: Yes (Hospitalization, Other)
  Sender: FDA-Public Use
  Company Number: US200607005392

PATIENT
  Age: 66 Year
  Sex: Female

DRUGS (8)
  1. OLANZAPINE [Suspect]
     Indication: SCHIZOPHRENIA
  2. ZOLPIDEM TARTRATE [Concomitant]
  3. VALPROIC ACID [Concomitant]
  4. MIRTAZAPINE [Concomitant]
  5. TRAZODONE HCL [Concomitant]
  6. QUETIAPINE FUMARATE [Concomitant]
  7. BENZATROPINE MESYLATE (BENZATROPINE MESILATE) [Concomitant]
  8. DANTROLENE SODIUM [Concomitant]

REACTIONS (1)
  - NEUROLEPTIC MALIGNANT SYNDROME [None]
